FAERS Safety Report 4773982-6 (Version None)
Quarter: 2005Q3

REPORT INFORMATION
  Report Type: 
  Country: None (occurrence: None)
  Receive Date: 20050919
  Receipt Date: 20050906
  Transmission Date: 20060218
  Serious: Yes (Hospitalization)
  Sender: FDA-Public Use
  Company Number: US-2005-016293

PATIENT
  Age: 51 Year
  Sex: Male
  Weight: 92.5 kg

DRUGS (5)
  1. BETASERON [Suspect]
     Indication: MULTIPLE SCLEROSIS
     Dosage: 8 MIU, EVERY 2 D, SUBCUTANEOUS
     Route: 058
     Dates: start: 20010301, end: 20021231
  2. WELLBUTRIN SR [Concomitant]
  3. BACLOFEN [Concomitant]
  4. ZANAFLEX [Concomitant]
  5. PROVIGIL [Concomitant]

REACTIONS (3)
  - INJECTION SITE INFECTION [None]
  - INJECTION SITE NECROSIS [None]
  - NECROTISING FASCIITIS [None]
